FAERS Safety Report 22387695 (Version 1)
Quarter: 2023Q2

REPORT INFORMATION
  Report Type: Spontaneous
  Country: BR (occurrence: None)
  Receive Date: 20230531
  Receipt Date: 20230531
  Transmission Date: 20230722
  Serious: Yes (Other)
  Sender: FDA-Public Use
  Company Number: BR-ROCHE-3359164

PATIENT
  Sex: Male
  Weight: 84 kg

DRUGS (3)
  1. RIVOTRIL [Suspect]
     Active Substance: CLONAZEPAM
     Indication: Insomnia
     Dosage: 20 DROP IN 1 DAY, WHEN HE GOES TO SLEEP, 2.5MG/ML FOR MORE THAN 40 YEARS
     Route: 048
  2. RIVOTRIL [Suspect]
     Active Substance: CLONAZEPAM
     Dosage: 20 DROPS, 10 DROPS BEFORE GOING TO SLEEP AND 10 DROPS WHEN WAKING UP, DURING THE NIGHT, 20 DROPS
     Route: 048
  3. GLIFAGE [Concomitant]
     Active Substance: METFORMIN HYDROCHLORIDE
     Indication: Diabetes mellitus
     Route: 048

REACTIONS (4)
  - Polycythaemia vera [Not Recovered/Not Resolved]
  - Oedema [Recovered/Resolved]
  - Incorrect dose administered by product [Unknown]
  - Off label use [Unknown]

NARRATIVE: CASE EVENT DATE: 19830101
